FAERS Safety Report 9202363 (Version 1)
Quarter: 2013Q1

REPORT INFORMATION
  Report Type: Spontaneous
  Country: US (occurrence: None)
  Receive Date: 20130329
  Receipt Date: 20130329
  Transmission Date: 20140127
  Serious: No
  Sender: FDA-Public Use
  Company Number: None

PATIENT
  Age: 49 Year
  Sex: Female
  Weight: 68.04 kg

DRUGS (1)
  1. AMITRIPTYLINE [Suspect]
     Indication: HEADACHE
     Dates: start: 20130212, end: 20130226

REACTIONS (1)
  - Oral herpes [None]
